FAERS Safety Report 7588991-1 (Version None)
Quarter: 2011Q3

REPORT INFORMATION
  Report Type: 
  Country: None (occurrence: None)
  Receive Date: 20110705
  Receipt Date: 20110628
  Transmission Date: 20111222
  Serious: Yes (Death, Hospitalization)
  Sender: FDA-Public Use
  Company Number: JP-JNJFOC-20101208675

PATIENT
  Sex: Female
  Weight: 53 kg

DRUGS (7)
  1. DIPHENHYDRAMINE HCL [Concomitant]
     Indication: PROPHYLAXIS
     Route: 048
  2. ALBUMIN (HUMAN) [Concomitant]
     Indication: METASTASES TO CENTRAL NERVOUS SYSTEM
     Route: 041
     Dates: start: 20100412, end: 20100414
  3. DOXIL [Suspect]
     Indication: OVARIAN CANCER RECURRENT
     Dosage: CYCLE 1
     Route: 042
     Dates: start: 20100329, end: 20100329
  4. GRANISETRON [Concomitant]
     Indication: PROPHYLAXIS
     Route: 042
     Dates: start: 20100329
  5. PREDOPA [Concomitant]
     Indication: METASTASES TO CENTRAL NERVOUS SYSTEM
     Route: 041
     Dates: start: 20100410, end: 20100502
  6. ANTIBIOTIC NOS [Concomitant]
     Indication: PNEUMONIA
     Route: 065
  7. DECADRON [Concomitant]
     Indication: PROPHYLAXIS
     Route: 042

REACTIONS (2)
  - RESPIRATORY FAILURE [None]
  - DEHYDRATION [None]
